FAERS Safety Report 7332693-3 (Version None)
Quarter: 2011Q1

REPORT INFORMATION
  Report Type: 
  Country: None (occurrence: None)
  Receive Date: 20110304
  Receipt Date: 20110221
  Transmission Date: 20110831
  Serious: Yes (Hospitalization)
  Sender: FDA-Public Use
  Company Number: GXKR2011DK01001

PATIENT
  Sex: Female
  Weight: 55 kg

DRUGS (2)
  1. SERTRALIN HEXAL [Suspect]
     Indication: DEPRESSION
     Dosage: STYRKE: 50 MG.
     Route: 048
     Dates: start: 20100925, end: 20110124
  2. CONTRACEPTIVES NOS [Concomitant]
     Route: 048

REACTIONS (3)
  - FACIAL SPASM [None]
  - DISCOMFORT [None]
  - MUSCLE SPASMS [None]
